FAERS Safety Report 7729984-0 (Version None)
Quarter: 2011Q3

REPORT INFORMATION
  Report Type: 
  Country: None (occurrence: None)
  Receive Date: 20110906
  Receipt Date: 20110822
  Transmission Date: 20111222
  Serious: Yes (Death)
  Sender: FDA-Public Use
  Company Number: DE-ROCHE-795715

PATIENT
  Sex: Female
  Weight: 51 kg

DRUGS (1)
  1. BEVACIZUMAB [Suspect]
     Indication: BRONCHIAL CARCINOMA
     Route: 065
     Dates: end: 20110407

REACTIONS (1)
  - DEATH [None]
